FAERS Safety Report 5657352-4 (Version None)
Quarter: 2008Q1

REPORT INFORMATION
  Report Type: 
  Country: None (occurrence: None)
  Receive Date: 20080310
  Receipt Date: 20080229
  Transmission Date: 20080703
  Serious: Yes (Other)
  Sender: FDA-Public Use
  Company Number: PHHY2008NZ01959

PATIENT
  Age: 26 Year
  Sex: Male

DRUGS (1)
  1. CLOZARIL [Suspect]
     Indication: SCHIZOPHRENIA
     Dosage: 50MG MANE + 75MG NOCTE
     Route: 048
     Dates: start: 20080111, end: 20080127

REACTIONS (8)
  - CHEST PAIN [None]
  - INFLUENZA LIKE ILLNESS [None]
  - MULTIPLE ALLERGIES [None]
  - MYOCARDITIS [None]
  - PYREXIA [None]
  - SOMNOLENCE [None]
  - TACHYCARDIA [None]
  - TROPONIN T INCREASED [None]
